FAERS Safety Report 6083248-2 (Version None)
Quarter: 2009Q1

REPORT INFORMATION
  Report Type: 
  Country: None (occurrence: None)
  Receive Date: 20090217
  Receipt Date: 20090205
  Transmission Date: 20090719
  Serious: Yes (Hospitalization)
  Sender: FDA-Public Use
  Company Number: 2007US001390

PATIENT
  Age: 42 Year
  Sex: Female

DRUGS (11)
  1. PROGRAF [Suspect]
     Indication: KIDNEY TRANSPLANT REJECTION
     Dosage: 6 MG, BID, ORAL
     Route: 048
     Dates: start: 20060728, end: 20070501
  2. MYCOPHENOLATE MOFETIL [Suspect]
     Indication: KIDNEY TRANSPLANT REJECTION
     Dosage: 250 MG, BID, ORAL
     Route: 048
     Dates: start: 20040916
  3. PREDNISONE TAB [Suspect]
     Indication: KIDNEY TRANSPLANT REJECTION
     Dosage: 10 MG, ORAL
     Route: 048
     Dates: start: 20070309
  4. NORVASC [Concomitant]
  5. ASPIRIN [Concomitant]
  6. CLONIDINE [Concomitant]
  7. BACTRIM [Concomitant]
  8. TOPROL-XL [Concomitant]
  9. LIPITOR [Concomitant]
  10. PHOSLO [Concomitant]
  11. NEPHRO-VITE (VITAMIN NOS) [Concomitant]

REACTIONS (1)
  - HYPERTENSIVE EMERGENCY [None]
